FAERS Safety Report 12723846 (Version 1)
Quarter: 2016Q3

REPORT INFORMATION
  Report Type: Other
  Country: US (occurrence: US)
  Receive Date: 20160908
  Receipt Date: 20160908
  Transmission Date: 20161109
  Serious: Yes (Hospitalization)
  Sender: FDA-Public Use
  Company Number: US-ACORDA-ACO_127973_2016

PATIENT
  Sex: Female

DRUGS (1)
  1. AMPYRA [Suspect]
     Active Substance: DALFAMPRIDINE
     Indication: PRODUCT USED FOR UNKNOWN INDICATION
     Dosage: UNK
     Route: 065

REACTIONS (13)
  - Paraesthesia [Unknown]
  - Multiple sclerosis relapse [Unknown]
  - Syncope [Unknown]
  - Vertigo [Unknown]
  - Sciatica [Unknown]
  - Decreased appetite [Unknown]
  - Heart rate decreased [Unknown]
  - Asthenia [Unknown]
  - Insomnia [Unknown]
  - Weight decreased [Unknown]
  - Fibromyalgia [Unknown]
  - Hypoaesthesia [Unknown]
  - Pain [Unknown]
